FAERS Safety Report 6701852-2 (Version None)
Quarter: 2010Q2

REPORT INFORMATION
  Report Type: 
  Country: None (occurrence: None)
  Receive Date: 20100427
  Receipt Date: 20100420
  Transmission Date: 20101027
  Serious: Yes (Other)
  Sender: FDA-Public Use
  Company Number: CIP10000866

PATIENT
  Age: 58 Year
  Sex: Female

DRUGS (5)
  1. MACRODANTIN [Suspect]
     Indication: CYSTITIS
     Dosage: ORAL
     Route: 048
     Dates: end: 20090901
  2. REBIF [Suspect]
     Indication: MULTIPLE SCLEROSIS
     Dosage: 44 UG THREE TIMES PER WEEK, SUBCUTANEOUS
     Route: 058
     Dates: start: 20080910, end: 20090901
  3. IBUPROFEN [Suspect]
     Dosage: ORAL
     Route: 048
     Dates: end: 20090901
  4. PROZAC [Concomitant]
  5. NEURONTIN [Concomitant]

REACTIONS (1)
  - RENAL FAILURE [None]
